FAERS Safety Report 19531133 (Version 1)
Quarter: 2021Q3

REPORT INFORMATION
  Report Type: Spontaneous
  Country: US (occurrence: US)
  Receive Date: 20210714
  Receipt Date: 20210714
  Transmission Date: 20211014
  Serious: Yes (Other)
  Sender: FDA-Public Use
  Company Number: US-JNJFOC-20210702621

PATIENT

DRUGS (1)
  1. TYLENOL [Suspect]
     Active Substance: ACETAMINOPHEN
     Indication: PAIN MANAGEMENT
     Dosage: 2 TABLETS ONCE
     Route: 048
     Dates: start: 20210630

REACTIONS (1)
  - Foreign body in throat [Not Recovered/Not Resolved]

NARRATIVE: CASE EVENT DATE: 20210630
